FAERS Safety Report 9487108 (Version 1)
Quarter: 2013Q3

REPORT INFORMATION
  Report Type: Spontaneous
  Country: FR (occurrence: FR)
  Receive Date: 20130829
  Receipt Date: 20130829
  Transmission Date: 20140515
  Serious: Yes (Hospitalization)
  Sender: FDA-Public Use
  Company Number: FR-PFIZER INC-2013246330

PATIENT
  Age: 66 Year
  Sex: Male

DRUGS (10)
  1. TAHOR [Suspect]
     Indication: PROPHYLAXIS
     Dosage: 40 MG, 1X/DAY
     Route: 048
     Dates: start: 20130403, end: 20130705
  2. PERINDOPRIL [Suspect]
     Indication: HYPERTENSION
     Dosage: 4 MG, DAILY
     Route: 048
     Dates: start: 20130514, end: 20130705
  3. FLUOXETINE HCL [Suspect]
     Dosage: 20 MG, DAILY
     Route: 048
     Dates: start: 20130411, end: 20130702
  4. FLUOXETINE HCL [Suspect]
     Dosage: 10 MG, DAILY
     Route: 048
     Dates: start: 20130703, end: 20130708
  5. PRADAXA [Suspect]
     Indication: ISCHAEMIC STROKE
     Dosage: 110 MG, 2X/DAY
     Route: 048
     Dates: start: 20130506, end: 20130708
  6. DOLIPRANE [Suspect]
     Indication: MUSCULOSKELETAL PAIN
     Dosage: 3 G, DAILY
     Route: 048
     Dates: start: 20130403
  7. DOLIPRANE [Suspect]
     Dosage: 1500 MG, DAILY
     Route: 048
     Dates: end: 20130705
  8. DAFALGAN CODEINE [Suspect]
     Indication: MUSCULOSKELETAL PAIN
     Dosage: 3 DF, DAILY
     Route: 048
     Dates: start: 20130613, end: 20130703
  9. DUPHALAC [Suspect]
     Indication: CONSTIPATION
     Dosage: 1 DF, DAILY
     Route: 048
     Dates: start: 20130613, end: 20130705
  10. CONTRAMAL [Concomitant]
     Dosage: 150 MG, DAILY
     Dates: end: 20130515

REACTIONS (1)
  - Neutropenia [Recovered/Resolved]
